FAERS Safety Report 18973267 (Version 1)
Quarter: 2021Q1

REPORT INFORMATION
  Report Type: Spontaneous
  Country: CN (occurrence: CN)
  Receive Date: 20210305
  Receipt Date: 20210305
  Transmission Date: 20210420
  Serious: Yes (Other)
  Sender: FDA-Public Use
  Company Number: CN-PFIZER INC-2021206606

PATIENT
  Age: 32 Year
  Sex: Male
  Weight: 41 kg

DRUGS (2)
  1. SODIUM CHLORIDE. [Concomitant]
     Active Substance: SODIUM CHLORIDE
     Indication: VEHICLE SOLUTION USE
     Dosage: 100.000 ML, 1X/DAY
     Route: 041
     Dates: start: 20201115, end: 20201121
  2. SOLU?MEDROL [Suspect]
     Active Substance: METHYLPREDNISOLONE SODIUM SUCCINATE
     Indication: ANTIINFLAMMATORY THERAPY
     Dosage: 40.000 MG, 1X/DAY
     Route: 041
     Dates: start: 20201115, end: 20201121

REACTIONS (7)
  - Movement disorder [Unknown]
  - Disorganised speech [Recovered/Resolved]
  - Abnormal behaviour [Unknown]
  - Initial insomnia [Unknown]
  - Panic reaction [Recovered/Resolved]
  - Mental disorder [Recovering/Resolving]
  - Restlessness [Recovered/Resolved]

NARRATIVE: CASE EVENT DATE: 20201121
